FAERS Safety Report 10911572 (Version 1)
Quarter: 2015Q1

REPORT INFORMATION
  Report Type: Report from Study
  Country: US (occurrence: US)
  Receive Date: 20150313
  Receipt Date: 20150313
  Transmission Date: 20150721
  Serious: Yes (Other)
  Sender: FDA-Public Use
  Company Number: US-AMGEN-USASL2015022600

PATIENT
  Age: 67 Year
  Sex: Female

DRUGS (1)
  1. ENBREL [Suspect]
     Active Substance: ETANERCEPT
     Indication: ANKYLOSING SPONDYLITIS
     Dosage: UNK
     Route: 065
     Dates: start: 20130501

REACTIONS (8)
  - Thrombosis [Not Recovered/Not Resolved]
  - Systemic lupus erythematosus [Not Recovered/Not Resolved]
  - Spinal column stenosis [Not Recovered/Not Resolved]
  - Spinal pain [Not Recovered/Not Resolved]
  - Knee arthroplasty [Recovered/Resolved]
  - Spinal anaesthesia [Recovered/Resolved]
  - Sciatica [Not Recovered/Not Resolved]
  - Arthralgia [Not Recovered/Not Resolved]
